FAERS Safety Report 5775169-7 (Version None)
Quarter: 2008Q2

REPORT INFORMATION
  Report Type: 
  Country: None (occurrence: None)
  Receive Date: 20080616
  Receipt Date: 20080616
  Transmission Date: 20081010
  Serious: No
  Sender: FDA-Public Use
  Company Number: None

PATIENT
  Age: 35 Year
  Sex: Female
  Weight: 56.6996 kg

DRUGS (1)
  1. CHANTIX [Suspect]
     Indication: SMOKING CESSATION THERAPY
     Dates: start: 20070814, end: 20070825

REACTIONS (10)
  - ARTHRALGIA [None]
  - BONE DISORDER [None]
  - BONE PAIN [None]
  - GROWTH HORMONE DEFICIENCY [None]
  - HYPOTHALAMO-PITUITARY DISORDER [None]
  - MIGRAINE [None]
  - MUSCLE SPASMS [None]
  - OEDEMA [None]
  - PAIN [None]
  - WEIGHT INCREASED [None]
